FAERS Safety Report 5881761-1 (Version None)
Quarter: 2008Q3

REPORT INFORMATION
  Report Type: 
  Country: None (occurrence: None)
  Receive Date: 20080912
  Receipt Date: 20080710
  Transmission Date: 20090109
  Serious: No
  Sender: FDA-Public Use
  Company Number: US-ABBOTT-08P-163-0462286-00

PATIENT
  Sex: Female
  Weight: 59.02 kg

DRUGS (5)
  1. HUMIRA [Suspect]
     Indication: CROHN'S DISEASE
     Dosage: LOADING DOSE
     Route: 058
     Dates: start: 20080501, end: 20080501
  2. HUMIRA [Suspect]
     Route: 058
  3. HUMIRA [Suspect]
     Route: 058
  4. MESALAMINE [Concomitant]
     Indication: CROHN'S DISEASE
     Dosage: 12 - 400MG TABLETS DAILY
     Route: 048
  5. TRIVOR [Concomitant]
     Indication: CONTRACEPTION
     Route: 048
     Dates: start: 20000101

REACTIONS (5)
  - DYSPHAGIA [None]
  - EATING DISORDER [None]
  - PARAESTHESIA [None]
  - SENSATION OF FOREIGN BODY [None]
  - STOMATITIS [None]
